FAERS Safety Report 5513012-1 (Version None)
Quarter: 2007Q4

REPORT INFORMATION
  Report Type: 
  Country: None (occurrence: None)
  Receive Date: 20071112
  Receipt Date: 20071101
  Transmission Date: 20080405
  Serious: Yes (Life-Threatening, Hospitalization)
  Sender: FDA-Public Use
  Company Number: US-AMGEN-US247482

PATIENT
  Sex: Female
  Weight: 119.4 kg

DRUGS (18)
  1. PANITUMUMAB [Suspect]
     Indication: COLORECTAL CANCER
     Route: 042
     Dates: start: 20070913, end: 20071004
  2. FLUOROURACIL [Suspect]
     Route: 065
     Dates: start: 20070913
  3. LEUCOVORIN [Suspect]
     Route: 065
     Dates: start: 20070913
  4. IRINOTECAN HCL [Suspect]
     Route: 065
     Dates: start: 20070913
  5. MSIR [Concomitant]
     Route: 048
     Dates: start: 20071004
  6. MAGNESIUM OXIDE [Concomitant]
     Route: 048
     Dates: start: 20071004
  7. POTASSIUM CHLORIDE [Concomitant]
     Route: 048
     Dates: start: 20071004
  8. OMEPRAZOLE [Concomitant]
     Route: 048
     Dates: start: 20060101
  9. EFFEXOR [Concomitant]
     Route: 048
     Dates: start: 20070801
  10. PROCHLORPERAZINE [Concomitant]
     Route: 048
     Dates: start: 20060101
  11. ZOFRAN [Concomitant]
     Route: 048
     Dates: start: 20060101
  12. FLONASE [Concomitant]
     Route: 045
     Dates: start: 20020101
  13. PROSCAR [Concomitant]
     Route: 048
     Dates: start: 20070301
  14. LIPITOR [Concomitant]
     Route: 048
     Dates: start: 20020101
  15. FLOMAX [Concomitant]
     Route: 048
     Dates: start: 20070101
  16. ATIVAN [Concomitant]
     Route: 048
     Dates: start: 20060301
  17. ATENOLOL [Concomitant]
     Route: 048
     Dates: start: 19870101, end: 20071001
  18. ZESTRIL [Concomitant]
     Route: 048
     Dates: start: 20020101

REACTIONS (1)
  - ACUTE MYOCARDIAL INFARCTION [None]
